FAERS Safety Report 5683166-5 (Version None)
Quarter: 2008Q1

REPORT INFORMATION
  Report Type: 
  Country: None (occurrence: None)
  Receive Date: 20080326
  Receipt Date: 20080311
  Transmission Date: 20080703
  Serious: Yes (Hospitalization)
  Sender: FDA-Public Use
  Company Number: S08-USA-00777-01

PATIENT
  Age: 80 Year
  Sex: Female
  Weight: 73 kg

DRUGS (10)
  1. NAMENDA [Suspect]
     Indication: DEMENTIA ALZHEIMER'S TYPE
     Dosage: 10 MG BID PO
     Route: 048
  2. NAMENDA [Suspect]
     Indication: DEMENTIA ALZHEIMER'S TYPE
     Dates: start: 20061001
  3. LASIX [Concomitant]
  4. KLOR-CON (POTASSIUM) [Concomitant]
  5. ARICEPT [Concomitant]
  6. NEXIUM [Concomitant]
  7. MULTI-VITAMIN [Concomitant]
  8. CALCIUM [Concomitant]
  9. VITAMIN B-12 [Concomitant]
  10. TYLENOL PM (ACETAMINOPHEN AND DIPHENHYDRAMINE) [Concomitant]

REACTIONS (19)
  - BLOOD CREATININE INCREASED [None]
  - BLOOD GLUCOSE INCREASED [None]
  - BLOOD SODIUM DECREASED [None]
  - BUNDLE BRANCH BLOCK LEFT [None]
  - DYSPHAGIA [None]
  - ERUCTATION [None]
  - EXOSTOSIS [None]
  - FALL [None]
  - FEELING COLD [None]
  - FLATULENCE [None]
  - GRANULOCYTE COUNT INCREASED [None]
  - HAEMOGLOBIN DECREASED [None]
  - HYPOVOLAEMIA [None]
  - LYMPHOCYTE PERCENTAGE DECREASED [None]
  - MONOCYTE PERCENTAGE DECREASED [None]
  - OEDEMA PERIPHERAL [None]
  - PLATELET COUNT DECREASED [None]
  - TREMOR [None]
  - URINARY TRACT INFECTION [None]
